FAERS Safety Report 6521077-3 (Version None)
Quarter: 2009Q4

REPORT INFORMATION
  Report Type: 
  Country: None (occurrence: None)
  Receive Date: 20091229
  Receipt Date: 20091214
  Transmission Date: 20100525
  Serious: Yes (Hospitalization)
  Sender: FDA-Public Use
  Company Number: JP-MERCK-0912USA02523

PATIENT
  Age: 79 Year
  Sex: Female

DRUGS (5)
  1. FOSAMAX [Suspect]
     Indication: OSTEOPOROSIS
     Route: 048
     Dates: start: 20090902, end: 20090101
  2. MAGNESIUM OXIDE [Concomitant]
     Route: 048
  3. PANTOSIN [Concomitant]
     Route: 048
  4. ENTERONON R [Concomitant]
     Route: 048
  5. PURSENNID [Concomitant]
     Dosage: BEFORE RETIRING
     Route: 048

REACTIONS (5)
  - CHEST DISCOMFORT [None]
  - EROSIVE OESOPHAGITIS [None]
  - HAEMOPTYSIS [None]
  - OESOPHAGITIS HAEMORRHAGIC [None]
  - REFLUX OESOPHAGITIS [None]
